FAERS Safety Report 8833936 (Version 1)
Quarter: 2012Q4

REPORT INFORMATION
  Report Type: 
  Country: BR (occurrence: BR)
  Receive Date: 20121010
  Receipt Date: 20121010
  Transmission Date: 20130627
  Serious: Yes (Other)
  Sender: FDA-Public Use
  Company Number: CHPA2012BR021248

PATIENT
  Age: 63 Year
  Sex: Female

DRUGS (3)
  1. CIBALENA [Suspect]
     Indication: MIGRAINE
     Dosage: 1 tablet a day when in pain
     Route: 048
  2. CIBALENA [Suspect]
     Dosage: 1 DF, PRN
     Route: 048
  3. CIBALENAA [Suspect]
     Indication: MIGRAINE
     Dosage: 1 dose (2 tablets)
     Route: 048
     Dates: start: 20121001

REACTIONS (3)
  - Convulsion [Recovered/Resolved]
  - Liver disorder [Unknown]
  - Abdominal pain upper [Unknown]
